FAERS Safety Report 20269385 (Version 1)
Quarter: 2022Q1

REPORT INFORMATION
  Report Type: Report from Study
  Country: CA (occurrence: CA)
  Receive Date: 20220101
  Receipt Date: 20220101
  Transmission Date: 20220423
  Serious: Yes (Other)
  Sender: FDA-Public Use
  Company Number: CA-JNJFOC-20211224491

PATIENT
  Age: 69 Year
  Sex: Male

DRUGS (20)
  1. MACITENTAN [Suspect]
     Active Substance: MACITENTAN
     Indication: Pulmonary arterial hypertension
     Route: 048
     Dates: start: 20200904
  2. MACITENTAN [Suspect]
     Active Substance: MACITENTAN
     Indication: Connective tissue disorder
  3. SELEXIPAG [Suspect]
     Active Substance: SELEXIPAG
     Indication: Pulmonary arterial hypertension
     Route: 048
     Dates: start: 20211125
  4. SELEXIPAG [Suspect]
     Active Substance: SELEXIPAG
     Indication: Connective tissue disorder
     Route: 048
     Dates: start: 20211125
  5. ADCIRCA [Concomitant]
     Active Substance: TADALAFIL
  6. FUROSEMIDE [Concomitant]
     Active Substance: FUROSEMIDE
  7. PREDNISONE [Concomitant]
     Active Substance: PREDNISONE
  8. CELLCEPT [Concomitant]
     Active Substance: MYCOPHENOLATE MOFETIL
  9. VENTOLIN [Concomitant]
     Active Substance: ALBUTEROL SULFATE
  10. SPIRIVA [Concomitant]
     Active Substance: TIOTROPIUM BROMIDE MONOHYDRATE
  11. ADVAIR HFA [Concomitant]
     Active Substance: FLUTICASONE PROPIONATE\SALMETEROL XINAFOATE
  12. CALCIUM\CHOLECALCIFEROL [Concomitant]
     Active Substance: CALCIUM\CHOLECALCIFEROL
  13. SULFATRIM [Concomitant]
     Active Substance: SULFAMETHOXAZOLE\TRIMETHOPRIM
  14. HYDROXYCHLOROQUINE DIPHOSPHATE [Concomitant]
     Active Substance: HYDROXYCHLOROQUINE DIPHOSPHATE
  15. PANTOPRAZOLE SODIUM [Concomitant]
     Active Substance: PANTOPRAZOLE SODIUM
  16. ERGOCALCIFEROL [Concomitant]
     Active Substance: ERGOCALCIFEROL
  17. LYRICA [Concomitant]
     Active Substance: PREGABALIN
  18. DILAUDID [Concomitant]
     Active Substance: HYDROMORPHONE HYDROCHLORIDE
  19. XARELTO [Concomitant]
     Active Substance: RIVAROXABAN
  20. FRAGMIN [Concomitant]
     Active Substance: DALTEPARIN SODIUM

REACTIONS (2)
  - Pain [Not Recovered/Not Resolved]
  - Insomnia [Not Recovered/Not Resolved]

NARRATIVE: CASE EVENT DATE: 20211206
